FAERS Safety Report 7029233-5 (Version None)
Quarter: 2010Q4

REPORT INFORMATION
  Report Type: 
  Country: None (occurrence: None)
  Receive Date: 20101005
  Receipt Date: 20100927
  Transmission Date: 20110411
  Serious: Yes (Other)
  Sender: FDA-Public Use
  Company Number: US-SANOFI-AVENTIS-2010SA058460

PATIENT
  Age: 73 Year
  Sex: Male

DRUGS (3)
  1. LANTUS [Suspect]
     Dosage: 36 UNITS AM AND 16 UNITS PM
     Route: 058
  2. OPTICLICK [Suspect]
     Route: 058
  3. HUMALOG [Concomitant]
     Dosage: DOSE:5 UNIT(S)

REACTIONS (2)
  - BLINDNESS [None]
  - CATARACT [None]
